FAERS Safety Report 15019899 (Version 1)
Quarter: 2018Q2

REPORT INFORMATION
  Report Type: Other
  Country: MT (occurrence: MT)
  Receive Date: 20180618
  Receipt Date: 20180618
  Transmission Date: 20180711
  Serious: Yes (Hospitalization)
  Sender: FDA-Public Use
  Company Number: MT-MACLEODS PHARMACEUTICALS US LTD-MAC2018014290

PATIENT

DRUGS (1)
  1. ARIPIPRAZOLE  5 MG [Suspect]
     Active Substance: ARIPIPRAZOLE
     Indication: DEPRESSION
     Dosage: 5 MILLIGRAM
     Route: 065
     Dates: start: 20180401, end: 20180501

REACTIONS (1)
  - Contusion [Recovering/Resolving]

NARRATIVE: CASE EVENT DATE: 20180501
